FAERS Safety Report 5994243-3 (Version None)
Quarter: 2008Q4

REPORT INFORMATION
  Report Type: 
  Country: None (occurrence: None)
  Receive Date: 20081212
  Receipt Date: 20080905
  Transmission Date: 20090506
  Serious: No
  Sender: FDA-Public Use
  Company Number: US-ABBOTT-08P-163-0474414-00

PATIENT
  Sex: Male
  Weight: 136.2 kg

DRUGS (20)
  1. HUMIRA [Suspect]
     Indication: RHEUMATOID ARTHRITIS
     Route: 058
     Dates: start: 20040101
  2. HYDROXYCHLOROQUINE SULFATE [Concomitant]
     Indication: RHEUMATOID ARTHRITIS
  3. FOLIC ACID [Concomitant]
     Indication: RHEUMATOID ARTHRITIS
  4. METHOTREXATE [Concomitant]
     Indication: RHEUMATOID ARTHRITIS
  5. VICODIN [Concomitant]
     Indication: PAIN
  6. CELECOXIB [Concomitant]
     Indication: RHEUMATOID ARTHRITIS
  7. SERETIDE [Concomitant]
     Indication: ASTHMA
  8. MONTELUKAST SODIUM [Concomitant]
     Indication: ASTHMA
  9. PROAIR HFA [Concomitant]
     Indication: ASTHMA
  10. ALBUTEROL [Concomitant]
     Indication: ASTHMA
  11. FLUTICASONE PROPIONATE [Concomitant]
     Indication: ASTHMA
  12. PREDNISONE TAB [Concomitant]
     Indication: RHEUMATOID ARTHRITIS
  13. METOPROLOL SUCCINATE [Concomitant]
     Indication: HYPERTENSION
  14. DIOVAN HCT [Concomitant]
     Indication: HYPERTENSION
  15. FUROSEMIDE [Concomitant]
     Indication: FLUID RETENTION
  16. DULOXETINE HYDROCHLORIDE [Concomitant]
     Indication: DEPRESSION
  17. ALPRAZOLAM [Concomitant]
     Indication: DEPRESSION
  18. SIMVASTATIN [Concomitant]
     Indication: BLOOD CHOLESTEROL INCREASED
  19. LANSOPRAZOLE [Concomitant]
     Indication: GASTROOESOPHAGEAL REFLUX DISEASE
  20. TRAZODONE HCL [Concomitant]
     Indication: SLEEP DISORDER THERAPY

REACTIONS (1)
  - PROCEDURAL COMPLICATION [None]
